FAERS Safety Report 4874149-3 (Version None)
Quarter: 2006Q1

REPORT INFORMATION
  Report Type: 
  Country: None (occurrence: None)
  Receive Date: 20060104
  Receipt Date: 20051219
  Transmission Date: 20060701
  Serious: Yes (Other)
  Sender: FDA-Public Use
  Company Number: 2005170405

PATIENT
  Sex: Female
  Weight: 68.0396 kg

DRUGS (4)
  1. LIPITOR [Suspect]
     Indication: BLOOD CHOLESTEROL
     Dosage: 10 MG (10 MG, 1 IN 1 D), ORAL
     Route: 048
     Dates: start: 20000101
  2. SYNTHROID [Concomitant]
  3. WARFARIN SODIUM [Concomitant]
  4. TOPROX XL (METOPROLOL SUCCINATE) [Concomitant]

REACTIONS (7)
  - ATRIAL FIBRILLATION [None]
  - BLOOD CHOLESTEROL DECREASED [None]
  - BLOOD CHOLESTEROL INCREASED [None]
  - HEART RATE DECREASED [None]
  - INADEQUATE DIET [None]
  - WRONG DRUG ADMINISTERED [None]
  - WRONG TECHNIQUE IN DRUG USAGE PROCESS [None]
